FAERS Safety Report 9819476 (Version 3)
Quarter: 2014Q1

REPORT INFORMATION
  Report Type: Report from Study
  Country: US (occurrence: US)
  Receive Date: 20140115
  Receipt Date: 20140129
  Transmission Date: 20141002
  Serious: Yes (Life-Threatening, Hospitalization)
  Sender: FDA-Public Use
  Company Number: US-ACTELION-A-US2013-90306

PATIENT
  Age: 14 Year
  Sex: Male

DRUGS (7)
  1. TRACLEER [Suspect]
     Indication: PULMONARY ARTERIAL HYPERTENSION
     Dosage: 125 MG, BID
     Route: 048
     Dates: start: 201205
  2. TRACLEER [Suspect]
     Dosage: 62.5 MG, BID
     Route: 048
     Dates: start: 20111227
  3. SILDENAFIL [Concomitant]
  4. WARFARIN [Concomitant]
  5. FUROSEMIDE [Concomitant]
  6. ASPIRIN [Concomitant]
  7. AMIODARONE [Concomitant]

REACTIONS (8)
  - Myocardial infarction [Recovering/Resolving]
  - Cardiac operation [Recovering/Resolving]
  - Atrial tachycardia [Recovering/Resolving]
  - Cardioversion [Recovering/Resolving]
  - Pyrexia [Recovering/Resolving]
  - Incision site inflammation [Recovering/Resolving]
  - Haemorrhage [Recovering/Resolving]
  - Hypotension [Recovering/Resolving]
